FAERS Safety Report 5563795-X (Version None)
Quarter: 2007Q4

REPORT INFORMATION
  Report Type: 
  Country: None (occurrence: None)
  Receive Date: 20071217
  Receipt Date: 20071207
  Transmission Date: 20080405
  Serious: Yes (Hospitalization)
  Sender: FDA-Public Use
  Company Number: PHBS2007ZA16874

PATIENT
  Age: 57 Year
  Sex: Female

DRUGS (3)
  1. BACLOFEN [Suspect]
     Indication: NECK PAIN
     Dosage: 25MG/D
     Route: 048
  2. TOPIRAMATE [Concomitant]
  3. LAMICTAL [Concomitant]

REACTIONS (15)
  - BACK PAIN [None]
  - BRONCHITIS [None]
  - CHEST DISCOMFORT [None]
  - CHEST PAIN [None]
  - CONFUSIONAL STATE [None]
  - DIZZINESS [None]
  - DYSPNOEA [None]
  - FATIGUE [None]
  - FEELING ABNORMAL [None]
  - MYALGIA [None]
  - NAUSEA [None]
  - PAIN IN EXTREMITY [None]
  - PARAESTHESIA [None]
  - PAROSMIA [None]
  - TREMOR [None]
